FAERS Safety Report 17909504 (Version 1)
Quarter: 2020Q2

REPORT INFORMATION
  Report Type: Spontaneous
  Country: US (occurrence: US)
  Receive Date: 20200618
  Receipt Date: 20200618
  Transmission Date: 20200714
  Serious: No
  Sender: FDA-Public Use
  Company Number: US-LUPIN PHARMACEUTICALS INC.-2020-01655

PATIENT
  Age: 74 Year
  Sex: Male
  Weight: 82 kg

DRUGS (6)
  1. CIPRO [Concomitant]
     Active Substance: CIPROFLOXACIN HYDROCHLORIDE
     Indication: Q FEVER
     Dosage: 500 MILLIGRAM, QD
     Route: 048
     Dates: start: 20200310
  2. OXYCODONE [Concomitant]
     Active Substance: OXYCODONE
     Indication: ARTHRALGIA
  3. OXYCODONE [Concomitant]
     Active Substance: OXYCODONE
     Indication: NEURALGIA
     Dosage: 10 MILLIGRAM, AS NEEDED
     Route: 048
  4. LYRICA [Suspect]
     Active Substance: PREGABALIN
     Indication: NEURALGIA
     Dosage: UNK
     Route: 065
  5. GABAPENTIN. [Suspect]
     Active Substance: GABAPENTIN
     Indication: NEURALGIA
     Dosage: UNK
     Route: 065
  6. DULOXETINE DELAYED-RELEASE CAPSULES 20 MG [Suspect]
     Active Substance: DULOXETINE
     Indication: NEURALGIA
     Dosage: 20 MILLIGRAM, QD
     Route: 048
     Dates: start: 20200309, end: 20200309

REACTIONS (8)
  - Adjustment disorder [Recovering/Resolving]
  - Dissociation [Recovering/Resolving]
  - Dysstasia [Recovering/Resolving]
  - Off label use [Unknown]
  - Adverse drug reaction [Unknown]
  - Drug ineffective [Unknown]
  - Balance disorder [Recovering/Resolving]
  - Coxiella test positive [Not Recovered/Not Resolved]

NARRATIVE: CASE EVENT DATE: 20200309
